FAERS Safety Report 7271674-5 (Version None)
Quarter: 2011Q1

REPORT INFORMATION
  Report Type: 
  Country: None (occurrence: None)
  Receive Date: 20110203
  Receipt Date: 20110131
  Transmission Date: 20110831
  Serious: No
  Sender: FDA-Public Use
  Company Number: US-JNJFOC-20110200709

PATIENT
  Sex: Male
  Weight: 98.88 kg

DRUGS (4)
  1. FENTANYL-100 [Suspect]
     Dosage: 12.5 AND 25 MCG
     Route: 062
  2. FENTANYL-100 [Suspect]
     Indication: ARTHRALGIA
     Dosage: 12.5 AND 25 MCG
     Route: 062
  3. FENTANYL-100 [Suspect]
     Indication: PAIN IN EXTREMITY
     Dosage: 12.5 AND 25 MCG
     Route: 062
  4. UNKNOWN MEDICATION [Concomitant]
     Route: 065

REACTIONS (2)
  - PRODUCT QUALITY ISSUE [None]
  - TREATMENT NONCOMPLIANCE [None]
